FAERS Safety Report 5933677-X (Version None)
Quarter: 2008Q4

REPORT INFORMATION
  Report Type: 
  Country: None (occurrence: None)
  Receive Date: 20081029
  Receipt Date: 20081020
  Transmission Date: 20090506
  Serious: Yes (Other)
  Sender: FDA-Public Use
  Company Number: CA-CELGENEUS-028-20785-08101316

PATIENT
  Age: 36 Year
  Sex: Female

DRUGS (4)
  1. THALOMID [Suspect]
     Indication: MULTIPLE MYELOMA
     Route: 048
  2. THALOMID [Suspect]
     Route: 048
  3. DEXAMETHASONE 4MG TAB [Concomitant]
     Indication: MULTIPLE MYELOMA
     Route: 065
  4. DALTEPARIN SODIUM [Concomitant]
     Route: 065

REACTIONS (1)
  - HEPATOTOXICITY [None]
